FAERS Safety Report 13721104 (Version 1)
Quarter: 2017Q3

REPORT INFORMATION
  Report Type: Spontaneous
  Country: FR (occurrence: FR)
  Receive Date: 20170706
  Receipt Date: 20170706
  Transmission Date: 20171127
  Serious: Yes (Other)
  Sender: FDA-Public Use
  Company Number: FR-BAYER-2017-127045

PATIENT
  Age: 28 Year
  Sex: Female

DRUGS (1)
  1. MIRENA [Suspect]
     Active Substance: LEVONORGESTREL
     Indication: CONTRACEPTION
     Dosage: 20 MCG/24HR, CONT
     Route: 015
     Dates: start: 20170404, end: 20170520

REACTIONS (14)
  - Burning sensation [Recovering/Resolving]
  - Migraine [Recovering/Resolving]
  - Hyperhidrosis [Recovering/Resolving]
  - Irritability [Recovering/Resolving]
  - Pruritus [Recovering/Resolving]
  - Genital infection female [Recovered/Resolved]
  - Pelvic pain [Recovered/Resolved]
  - Loss of libido [Recovering/Resolving]
  - Vertigo [Recovering/Resolving]
  - Tachycardia [Not Recovered/Not Resolved]
  - Back pain [Recovering/Resolving]
  - Acne [Recovering/Resolving]
  - Ovarian cyst [Not Recovered/Not Resolved]
  - Asthenia [Recovering/Resolving]

NARRATIVE: CASE EVENT DATE: 20170404
